FAERS Safety Report 17463333 (Version 1)
Quarter: 2020Q1

REPORT INFORMATION
  Report Type: Spontaneous
  Country: US (occurrence: US)
  Receive Date: 20200226
  Receipt Date: 20200226
  Transmission Date: 20200409
  Serious: No
  Sender: FDA-Public Use
  Company Number: US-BAUSCH-BL-2020-004159

PATIENT
  Sex: Female
  Weight: 51.3 kg

DRUGS (2)
  1. ADDERALL [Concomitant]
     Active Substance: AMPHETAMINE ASPARTATE\AMPHETAMINE SULFATE\DEXTROAMPHETAMINE SACCHARATE\DEXTROAMPHETAMINE SULFATE
     Indication: PRODUCT USED FOR UNKNOWN INDICATION
     Route: 048
  2. ONEXTON [Suspect]
     Active Substance: BENZOYL PEROXIDE\CLINDAMYCIN PHOSPHATE
     Indication: ACNE
     Dosage: 1.2 PERCENT/3.75 PERCENT, IN THE NIGHT FOR 2 WEEKS
     Route: 061
     Dates: end: 2020

REACTIONS (5)
  - Skin exfoliation [Recovered/Resolved]
  - Skin burning sensation [Recovered/Resolved]
  - Sensitive skin [Recovered/Resolved]
  - Erythema [Recovered/Resolved]
  - Dermatitis [Recovered/Resolved]
